FAERS Safety Report 19145962 (Version 1)
Quarter: 2021Q2

REPORT INFORMATION
  Report Type: Spontaneous
  Country: CN (occurrence: CN)
  Receive Date: 20210416
  Receipt Date: 20210416
  Transmission Date: 20210717
  Serious: Yes (Other)
  Sender: FDA-Public Use
  Company Number: NVSC2021CN084852

PATIENT
  Age: 62 Year
  Sex: Male
  Weight: 58 kg

DRUGS (2)
  1. ROSUVASTATIN CALCIUM. [Suspect]
     Active Substance: ROSUVASTATIN CALCIUM
     Indication: CAROTID ARTERY DISEASE
     Dosage: 10 MG
     Route: 048
     Dates: start: 20210222, end: 20210308
  2. ROSUVASTATIN CALCIUM. [Suspect]
     Active Substance: ROSUVASTATIN CALCIUM
     Dosage: 5 MG
     Route: 048
     Dates: start: 20210309, end: 20210324

REACTIONS (1)
  - Hepatic function abnormal [Recovering/Resolving]

NARRATIVE: CASE EVENT DATE: 20210324
